FAERS Safety Report 21514749 (Version 2)
Quarter: 2022Q4

REPORT INFORMATION
  Report Type: Spontaneous
  Country: US (occurrence: US)
  Receive Date: 20221027
  Receipt Date: 20221101
  Transmission Date: 20230113
  Serious: Yes (Life-Threatening, Hospitalization, Other)
  Sender: FDA-Public Use
  Company Number: US-PFIZER INC-PV202200083170

PATIENT
  Age: 2 Day
  Sex: Male

DRUGS (1)
  1. ONDANSETRON HCL [Suspect]
     Active Substance: ONDANSETRON HYDROCHLORIDE
     Dosage: 2 MG (0.7 MG/KG)
     Route: 030

REACTIONS (7)
  - Wrong product administered [Recovering/Resolving]
  - Accidental overdose [Recovering/Resolving]
  - Incorrect route of product administration [Recovering/Resolving]
  - Bradycardia neonatal [Recovering/Resolving]
  - Electrocardiogram QT prolonged [Recovering/Resolving]
  - Penile oedema [Recovering/Resolving]
  - Injection site oedema [Recovering/Resolving]
